FAERS Safety Report 20385399 (Version 4)
Quarter: 2022Q4

REPORT INFORMATION
  Report Type: Report from Study
  Country: US (occurrence: US)
  Receive Date: 20220127
  Receipt Date: 20221103
  Transmission Date: 20230113
  Serious: No
  Sender: FDA-Public Use
  Company Number: US-NOVARTISTESTPH-NVSC2022US017447

PATIENT
  Sex: Female

DRUGS (2)
  1. COSENTYX [Suspect]
     Active Substance: SECUKINUMAB
     Indication: Hidradenitis
     Dosage: UNK
     Route: 065
  2. COSENTYX [Suspect]
     Active Substance: SECUKINUMAB
     Dosage: 300 MG, Q2W (ONCE EVERY 2 WEEKS)
     Route: 058
     Dates: start: 202109

REACTIONS (3)
  - Skin discolouration [Unknown]
  - Feeling abnormal [Unknown]
  - Condition aggravated [Not Recovered/Not Resolved]
